FAERS Safety Report 7803844-9 (Version None)
Quarter: 2011Q4

REPORT INFORMATION
  Report Type: 
  Country: None (occurrence: None)
  Receive Date: 20111010
  Receipt Date: 20110926
  Transmission Date: 20120403
  Serious: Yes (Other)
  Sender: FDA-Public Use
  Company Number: AR-JNJFOC-20110806325

PATIENT
  Sex: Female
  Weight: 66 kg

DRUGS (11)
  1. GOLIMUMAB [Suspect]
     Route: 042
     Dates: start: 20110720
  2. PLACEBO [Suspect]
     Indication: RHEUMATOID ARTHRITIS
     Route: 042
     Dates: start: 20100915
  3. PANTOPRAZOLE [Concomitant]
     Indication: GASTRITIS PROPHYLAXIS
     Route: 048
  4. EZETIMIBE [Concomitant]
     Route: 048
     Dates: start: 20110518
  5. LEVOFLOXACIN [Concomitant]
     Route: 048
     Dates: start: 20110731
  6. GOLIMUMAB [Suspect]
     Indication: RHEUMATOID ARTHRITIS
     Route: 042
     Dates: start: 20100915
  7. COLECALCIFEROL [Concomitant]
     Indication: OSTEOPOROSIS PROPHYLAXIS
     Route: 048
     Dates: start: 20110720
  8. PLACEBO [Suspect]
     Route: 042
     Dates: start: 20110201
  9. SIMVASTATIN [Concomitant]
     Route: 048
     Dates: start: 20110518
  10. PREDNISONE [Concomitant]
     Indication: RHEUMATOID ARTHRITIS
     Route: 048
     Dates: start: 20101210
  11. FOLIC ACID [Concomitant]
     Indication: ANAEMIA PROPHYLAXIS
     Route: 048
     Dates: start: 20100323

REACTIONS (1)
  - LUNG NEOPLASM [None]
